FAERS Safety Report 6379340-5 (Version None)
Quarter: 2009Q3

REPORT INFORMATION
  Report Type: 
  Country: None (occurrence: None)
  Receive Date: 20090923
  Receipt Date: 20090923
  Transmission Date: 20100115
  Serious: Yes (Hospitalization)
  Sender: FDA-Public Use
  Company Number: None

PATIENT
  Age: 47 Year
  Sex: Female
  Weight: 84 kg

DRUGS (6)
  1. METHADONE HYDROCHLORIDE [Suspect]
     Indication: DRUG ABUSE
     Dosage: 140 MG PO QD
  2. FUROSEMIDE [Concomitant]
  3. BUPROPION HCL [Concomitant]
  4. DOXEPIN HCL [Concomitant]
  5. METOPROLOL [Concomitant]
  6. TIOTROPIUM [Concomitant]

REACTIONS (5)
  - GAIT DISTURBANCE [None]
  - NO THERAPEUTIC RESPONSE [None]
  - OEDEMA [None]
  - OEDEMA PERIPHERAL [None]
  - PAIN [None]
